FAERS Safety Report 6269867-9 (Version None)
Quarter: 2009Q3

REPORT INFORMATION
  Report Type: 
  Country: None (occurrence: None)
  Receive Date: 20090716
  Receipt Date: 20071004
  Transmission Date: 20100115
  Serious: Yes (Hospitalization, Other)
  Sender: FDA-Public Use
  Company Number: US-ASTRAZENECA-2006UW13041

PATIENT
  Age: 372 Month
  Sex: Male
  Weight: 59.9 kg

DRUGS (15)
  1. SEROQUEL [Suspect]
     Indication: SLEEP DISORDER
     Dosage: 100 MG, 200 MG, 400 MG
     Route: 048
     Dates: start: 20000101, end: 20070101
  2. SEROQUEL [Suspect]
     Indication: DEPRESSION
     Dosage: 100 MG, 200 MG, 400 MG
     Route: 048
     Dates: start: 20000101, end: 20070101
  3. SEROQUEL [Suspect]
     Dosage: 100 - 500 MG
     Route: 048
     Dates: start: 20040903
  4. SEROQUEL [Suspect]
     Dosage: 100 - 500 MG
     Route: 048
     Dates: start: 20040903
  5. CLOZARIL [Concomitant]
     Dates: start: 20060101
  6. RISPERDAL [Concomitant]
     Dates: start: 20061211
  7. CLONAZEPAM [Concomitant]
  8. SOMA [Concomitant]
     Route: 048
     Dates: start: 20040416
  9. REMERON [Concomitant]
     Indication: DEPRESSION
     Dosage: 15 - 45 MG
     Route: 048
     Dates: start: 20040611
  10. ZOLOFT [Concomitant]
     Dosage: 50 - 100 MG
     Route: 048
     Dates: start: 20020709
  11. CELEXA [Concomitant]
     Indication: DEPRESSION
     Dosage: 10 - 40 MG
     Route: 048
     Dates: start: 20070125
  12. IBUPROFEN [Concomitant]
     Dates: start: 20040611
  13. ZANTAC [Concomitant]
     Indication: GASTROOESOPHAGEAL REFLUX DISEASE
     Route: 048
     Dates: start: 20011219
  14. NAPROXEN [Concomitant]
     Indication: ARTHRALGIA
     Route: 048
  15. NAPROXEN [Concomitant]
     Indication: NECK PAIN
     Route: 048

REACTIONS (11)
  - CERVICAL VERTEBRAL FRACTURE [None]
  - DEPRESSION [None]
  - DIABETES MELLITUS [None]
  - HERNIA [None]
  - ILL-DEFINED DISORDER [None]
  - INGUINAL HERNIA [None]
  - NECK INJURY [None]
  - NECK PAIN [None]
  - SCHIZOPHRENIA [None]
  - TARDIVE DYSKINESIA [None]
  - TYPE 2 DIABETES MELLITUS [None]
